FAERS Safety Report 25542468 (Version 1)
Quarter: 2025Q3

REPORT INFORMATION
  Report Type: Spontaneous
  Country: EU (occurrence: EU)
  Receive Date: 20250711
  Receipt Date: 20250711
  Transmission Date: 20251020
  Serious: Yes (Hospitalization, Other)
  Sender: MERCK SHARP & DOHME LLC
  Company Number: None

PATIENT
  Age: 39 Year
  Sex: Male

DRUGS (3)
  1. KEYTRUDA [Suspect]
     Active Substance: PEMBROLIZUMAB
     Indication: Lung adenocarcinoma
     Route: 042
     Dates: start: 20250520, end: 20250620
  2. PEMETREXED [Concomitant]
     Active Substance: PEMETREXED
  3. CISPLATIN HIKMA [Concomitant]

REACTIONS (4)
  - Pancytopenia [Recovering/Resolving]
  - Neutrophilia [Recovering/Resolving]
  - Autoimmune hypothyroidism [Recovering/Resolving]
  - Dyspnoea [Recovering/Resolving]

NARRATIVE: CASE EVENT DATE: 20250606
